FAERS Safety Report 20347957 (Version 1)
Quarter: 2022Q1

REPORT INFORMATION
  Report Type: Spontaneous
  Country: CN (occurrence: CN)
  Receive Date: 20220118
  Receipt Date: 20220118
  Transmission Date: 20220423
  Serious: Yes (Disabling)
  Sender: FDA-Public Use
  Company Number: CN-BAXTER-2022BAX000714

PATIENT
  Age: 59 Year
  Sex: Female
  Weight: 64 kg

DRUGS (15)
  1. CYCLOPHOSPHAMIDE [Suspect]
     Active Substance: CYCLOPHOSPHAMIDE
     Indication: Breast cancer stage I
     Dosage: NORMAL SALINE 500ML + CYCLOPHOSPHAMIDE 1G/IVGTT, ONCE D1
     Route: 041
     Dates: start: 20211219, end: 20211219
  2. CYCLOPHOSPHAMIDE [Suspect]
     Active Substance: CYCLOPHOSPHAMIDE
     Indication: Breast cancer female
     Dosage: NORMAL SALINE + CYCLOPHOSPHAMIDE , DOSE RE-INTRODUCED
     Route: 041
  3. MESNA [Suspect]
     Active Substance: MESNA
     Indication: Prophylaxis
     Route: 065
  4. SODIUM CHLORIDE [Suspect]
     Active Substance: SODIUM CHLORIDE
     Indication: Medication dilution
     Dosage: NORMAL SALINE 500ML + CYCLOPHOSPHAMIDE 1G, ONCE D1
     Route: 041
     Dates: start: 20211219, end: 20211219
  5. SODIUM CHLORIDE [Suspect]
     Active Substance: SODIUM CHLORIDE
     Dosage: DOSE REINTRODUCED (NORMAL SALINE + CYCLOPHOSPHAMIDE)
     Route: 041
  6. SODIUM CHLORIDE [Suspect]
     Active Substance: SODIUM CHLORIDE
     Dosage: NORMAL SALINE 500ML + EPIRUBICIN 160 MG, ONCE, D1, Q3W
     Route: 041
     Dates: start: 20211219, end: 20211219
  7. SODIUM CHLORIDE [Suspect]
     Active Substance: SODIUM CHLORIDE
     Dosage: DOSE REINTRODUCED, (NORMAL SALINE + EPIRUBICIN HYDROCHLORIDE)
     Route: 041
  8. EPIRUBICIN HYDROCHLORIDE [Suspect]
     Active Substance: EPIRUBICIN HYDROCHLORIDE
     Indication: Breast cancer stage I
     Dosage: NORMAL SALINE 500ML + EPIRUBICIN 160 MG, ONCE, D1, Q3W
     Route: 041
     Dates: start: 20211219, end: 20211219
  9. EPIRUBICIN HYDROCHLORIDE [Suspect]
     Active Substance: EPIRUBICIN HYDROCHLORIDE
     Indication: Breast cancer female
     Dosage: NORMAL SALINE + EPIRUBICIN HYDROCHLORIDE, DOSE REINTRODUCED
     Route: 041
  10. ONDANSETRON [Concomitant]
     Active Substance: ONDANSETRON
     Indication: Prophylaxis
     Route: 065
  11. OLANZAPINE [Concomitant]
     Active Substance: OLANZAPINE
     Indication: Prophylaxis
     Route: 065
  12. DEXAMETHASONE [Concomitant]
     Active Substance: DEXAMETHASONE
     Indication: Prophylaxis
     Route: 065
  13. GLUTATHIONE [Concomitant]
     Active Substance: GLUTATHIONE
     Indication: Symptomatic treatment
     Route: 065
  14. PANTOPRAZOLE [Concomitant]
     Active Substance: PANTOPRAZOLE
     Indication: Symptomatic treatment
     Route: 065
  15. POTASSIUM [Concomitant]
     Active Substance: POTASSIUM
     Indication: Product used for unknown indication
     Route: 065

REACTIONS (2)
  - Granulocytopenia [Unknown]
  - White blood cell count decreased [Unknown]

NARRATIVE: CASE EVENT DATE: 20220104
